FAERS Safety Report 25603264 (Version 2)
Quarter: 2025Q3

REPORT INFORMATION
  Report Type: Spontaneous
  Country: EU (occurrence: EU)
  Receive Date: 20250724
  Receipt Date: 20250807
  Transmission Date: 20251020
  Serious: Yes (Death, Other)
  Sender: PURDUE
  Company Number: EU-GRUNENTHAL-2025-110195

PATIENT
  Age: 55 Year
  Sex: Female

DRUGS (11)
  1. OXYCODONE HYDROCHLORIDE [Suspect]
     Active Substance: OXYCODONE HYDROCHLORIDE
     Indication: Pain
     Route: 065
  2. OXYCODONE [Suspect]
     Active Substance: OXYCODONE
     Indication: Pain
     Route: 065
  3. FENTANYL [Suspect]
     Active Substance: FENTANYL
     Indication: Pain
     Dosage: 400 MICROGRAM, EVERY 3 HRS
     Route: 045
  4. FENTANYL [Suspect]
     Active Substance: FENTANYL
     Dosage: 400 MICROGRAM, EVERY 6 HRS
     Route: 045
  5. FENTANYL [Suspect]
     Active Substance: FENTANYL
     Indication: Pain
     Route: 062
  6. FENTANYL [Suspect]
     Active Substance: FENTANYL
     Route: 062
  7. PREGABALIN [Concomitant]
     Active Substance: PREGABALIN
     Indication: Product used for unknown indication
     Route: 065
  8. DULOXETINE [Concomitant]
     Active Substance: DULOXETINE
     Indication: Cancer pain
     Route: 065
  9. MORPHINE [Concomitant]
     Active Substance: MORPHINE
     Indication: Cancer pain
     Route: 065
  10. DEXAMETHASONE [Concomitant]
     Active Substance: DEXAMETHASONE
     Indication: Cancer pain
     Route: 065
  11. CLONIDINE [Concomitant]
     Active Substance: CLONIDINE
     Indication: Cancer pain
     Route: 065

REACTIONS (6)
  - Death [Fatal]
  - Drug abuse [Unknown]
  - Drug dependence [Unknown]
  - Overdose [Unknown]
  - Hyperaesthesia [Recovering/Resolving]
  - Drug ineffective [Unknown]
